FAERS Safety Report 22524549 (Version 1)
Quarter: 2023Q2

REPORT INFORMATION
  Report Type: Spontaneous
  Country: ES (occurrence: ES)
  Receive Date: 20230606
  Receipt Date: 20230606
  Transmission Date: 20230721
  Serious: Yes (Other)
  Sender: FDA-Public Use
  Company Number: ES-VIIV HEALTHCARE LIMITED-ES2023EME069808

PATIENT

DRUGS (2)
  1. DOVATO [Interacting]
     Active Substance: DOLUTEGRAVIR SODIUM\LAMIVUDINE
     Indication: Product used for unknown indication
     Dosage: UNK
     Route: 048
     Dates: start: 20220114, end: 20230216
  2. MAGNESIUM CITRATE [Interacting]
     Active Substance: MAGNESIUM CITRATE
     Indication: Vitamin supplementation
     Dosage: 200 MG, QD,
     Route: 048
     Dates: start: 202203, end: 20230120

REACTIONS (5)
  - Pathogen resistance [Unknown]
  - Virologic failure [Recovered/Resolved]
  - Viral mutation identified [Unknown]
  - Drug interaction [Unknown]
  - Drug ineffective [Unknown]
